FAERS Safety Report 12478440 (Version 1)
Quarter: 2016Q2

REPORT INFORMATION
  Report Type: Spontaneous
  Country: US (occurrence: US)
  Receive Date: 20160618
  Receipt Date: 20160618
  Transmission Date: 20160815
  Serious: No
  Sender: FDA-Public Use
  Company Number: US-ASTRAZENECA-2016SE60258

PATIENT
  Age: 51 Year
  Sex: Male
  Weight: 94.3 kg

DRUGS (8)
  1. LITHIUM. [Concomitant]
     Active Substance: LITHIUM
     Indication: BIPOLAR DISORDER
     Dosage: 600.0MG UNKNOWN
     Route: 048
     Dates: start: 2006
  2. PRILOSEC [Suspect]
     Active Substance: OMEPRAZOLE MAGNESIUM
     Indication: GASTROOESOPHAGEAL REFLUX DISEASE
     Dosage: 20 MG
     Route: 048
  3. QUETIAPINE. [Suspect]
     Active Substance: QUETIAPINE
     Indication: BIPOLAR DISORDER
     Route: 048
     Dates: start: 2014
  4. CELEBREX [Concomitant]
     Active Substance: CELECOXIB
     Indication: PAIN
     Dosage: 200.0MG UNKNOWN
     Route: 048
     Dates: start: 201605
  5. LYRICA [Concomitant]
     Active Substance: PREGABALIN
     Indication: NEURALGIA
     Dosage: 200.0MG UNKNOWN
     Route: 048
     Dates: start: 2014
  6. PRILOSEC [Suspect]
     Active Substance: OMEPRAZOLE MAGNESIUM
     Indication: GASTROOESOPHAGEAL REFLUX DISEASE
     Route: 048
     Dates: start: 2004
  7. BENADRYL [Concomitant]
     Active Substance: DIPHENHYDRAMINE HYDROCHLORIDE
     Indication: SLEEP DISORDER
     Dosage: MG AT NIGHT
     Route: 048
     Dates: start: 2006
  8. CENTRUM SILVER [Concomitant]
     Active Substance: MINERALS\VITAMINS
     Indication: VITAMIN SUPPLEMENTATION
     Route: 048
     Dates: start: 201603

REACTIONS (17)
  - Sleep disorder [Unknown]
  - Dizziness [Unknown]
  - Hunger [Unknown]
  - Blood cholesterol increased [Unknown]
  - Muscle twitching [Unknown]
  - Weight increased [Unknown]
  - Throat irritation [Unknown]
  - Movement disorder [Unknown]
  - Feeling abnormal [Unknown]
  - Urine analysis abnormal [Unknown]
  - Depression [Unknown]
  - Drug ineffective [Unknown]
  - Road traffic accident [Unknown]
  - Dyspepsia [Unknown]
  - Off label use [Unknown]
  - Weight fluctuation [Unknown]
  - Blood alcohol increased [Unknown]

NARRATIVE: CASE EVENT DATE: 2015
